FAERS Safety Report 9013273 (Version 4)
Quarter: 2013Q1

REPORT INFORMATION
  Report Type: Spontaneous
  Country: US (occurrence: US)
  Receive Date: 20130114
  Receipt Date: 20130222
  Transmission Date: 20140127
  Serious: Yes (Hospitalization, Disabling)
  Sender: FDA-Public Use
  Company Number: US-SANOFI-AVENTIS-2013SA000881

PATIENT
  Age: 37 Year
  Sex: Male
  Weight: 79.29 kg

DRUGS (5)
  1. AUBAGIO [Suspect]
     Indication: MULTIPLE SCLEROSIS
     Route: 048
     Dates: start: 20121226, end: 20130102
  2. AMANTADINE [Concomitant]
     Indication: FATIGUE
  3. TRAZODONE [Concomitant]
     Indication: DEPRESSION
  4. SUMATRIPTAN [Concomitant]
     Indication: MIGRAINE
  5. VITAMINS NOS [Concomitant]

REACTIONS (11)
  - Multiple sclerosis [Unknown]
  - Urinary incontinence [Unknown]
  - Faecal incontinence [Unknown]
  - Abasia [Unknown]
  - Dyspnoea [Recovered/Resolved]
  - Asthenia [Recovered/Resolved]
  - Depressed level of consciousness [Unknown]
  - Speech disorder [Unknown]
  - Decreased appetite [Unknown]
  - Nausea [Unknown]
  - Back pain [Unknown]
